FAERS Safety Report 23297065 (Version 1)
Quarter: 2023Q4

REPORT INFORMATION
  Report Type: Spontaneous
  Country: CA (occurrence: CA)
  Receive Date: 20231214
  Receipt Date: 20231214
  Transmission Date: 20240110
  Serious: Yes (Hospitalization, Other)
  Sender: FDA-Public Use
  Company Number: CA-PFIZER INC-202300367648

PATIENT
  Age: 37 Year
  Sex: Female
  Weight: 70 kg

DRUGS (4)
  1. RUXIENCE [Suspect]
     Active Substance: RITUXIMAB-PVVR
     Indication: Retinal vasculitis
     Dosage: 675 MG, WEEKLY (INCOMPLETE INFUSION RECEIVED (RECEIVED APPROX. 32MLS OF MEDICATION)
     Route: 042
     Dates: start: 20231201, end: 20231201
  2. RUXIENCE [Suspect]
     Active Substance: RITUXIMAB-PVVR
     Dosage: 675 MG, WEEKLY (INCOMPLETE INFUSION RECEIVED (RECEIVED APPROX. 32MLS OF MEDICATION)
     Route: 042
     Dates: start: 20231201, end: 20231201
  3. ADALIMUMAB [Concomitant]
     Active Substance: ADALIMUMAB\ISOPROPYL ALCOHOL
     Indication: Retinal vasculitis
     Dosage: 40 MG, EVERY 2 WEEK, FORMULATION NOT PROVIDED
     Route: 058
  4. PREDNISONE [Concomitant]
     Active Substance: PREDNISONE
     Dosage: 50 MG, 1X/DAY

REACTIONS (9)
  - Anaphylactic reaction [Recovering/Resolving]
  - Infusion related reaction [Recovering/Resolving]
  - Tongue pruritus [Recovering/Resolving]
  - Sensation of foreign body [Recovering/Resolving]
  - Fatigue [Unknown]
  - Dyspnoea [Unknown]
  - Restlessness [Unknown]
  - Somnolence [Unknown]
  - Off label use [Unknown]

NARRATIVE: CASE EVENT DATE: 20231201
